FAERS Safety Report 21794597 (Version 1)
Quarter: 2022Q4

REPORT INFORMATION
  Report Type: Spontaneous
  Country: BE (occurrence: BE)
  Receive Date: 20221229
  Receipt Date: 20221229
  Transmission Date: 20230112
  Serious: Yes (Other)
  Sender: FDA-Public Use
  Company Number: None

PATIENT

DRUGS (1)
  1. ZYPREXA [Suspect]
     Active Substance: OLANZAPINE
     Indication: Product used for unknown indication
     Dosage: UNK UNK, UNKNOWN
     Route: 065

REACTIONS (14)
  - Syncope [Unknown]
  - Respiratory disorder [Unknown]
  - Sense of oppression [Unknown]
  - Dyspnoea [Unknown]
  - Hunger [Unknown]
  - Speech disorder [Unknown]
  - Swelling [Unknown]
  - Asthenia [Unknown]
  - Rash [Unknown]
  - Sedation [Unknown]
  - Memory impairment [Unknown]
  - Abdominal distension [Unknown]
  - Amnesia [Unknown]
  - Weight increased [Unknown]
